FAERS Safety Report 7759657-X (Version None)
Quarter: 2011Q3

REPORT INFORMATION
  Report Type: 
  Country: None (occurrence: None)
  Receive Date: 20110919
  Receipt Date: 20110907
  Transmission Date: 20111222
  Serious: Yes (Hospitalization)
  Sender: FDA-Public Use
  Company Number: DE-JNJFOC-20110806101

PATIENT
  Sex: Female

DRUGS (5)
  1. TOPAMAX [Suspect]
     Indication: PRODUCT USED FOR UNKNOWN INDICATION
     Route: 048
  2. KEPPRA [Suspect]
     Route: 048
     Dates: start: 20110814, end: 20110814
  3. CARBAMAZEPINE [Suspect]
     Indication: PRODUCT USED FOR UNKNOWN INDICATION
     Route: 048
     Dates: start: 20110814, end: 20110814
  4. TOPAMAX [Suspect]
     Route: 048
     Dates: start: 20110814, end: 20110814
  5. KEPPRA [Suspect]
     Indication: PRODUCT USED FOR UNKNOWN INDICATION
     Route: 048
     Dates: start: 20110814, end: 20110814

REACTIONS (1)
  - INCORRECT DOSE ADMINISTERED [None]
